FAERS Safety Report 16557732 (Version 1)
Quarter: 2019Q3

REPORT INFORMATION
  Report Type: Spontaneous
  Country: NL (occurrence: NL)
  Receive Date: 20190711
  Receipt Date: 20190711
  Transmission Date: 20191004
  Serious: Yes (Other)
  Sender: FDA-Public Use
  Company Number: NL-AUROBINDO-AUR-APL-2019-039836

PATIENT

DRUGS (1)
  1. METOPROLOLTARTRAAT AUROBINDO 50 MG FILM COATED TABLETS [Suspect]
     Active Substance: METOPROLOL TARTRATE
     Indication: PRODUCT USED FOR UNKNOWN INDICATION
     Dosage: UNK
     Route: 065

REACTIONS (3)
  - Headache [Unknown]
  - Depression suicidal [Unknown]
  - Drug ineffective [Recovered/Resolved]
